FAERS Safety Report 6589822-9 (Version None)
Quarter: 2010Q1

REPORT INFORMATION
  Report Type: 
  Country: None (occurrence: None)
  Receive Date: 20100219
  Receipt Date: 20100201
  Transmission Date: 20100710
  Serious: No
  Sender: FDA-Public Use
  Company Number: US-JNJFOC-20100201945

PATIENT
  Sex: Female
  Weight: 62.6 kg

DRUGS (7)
  1. DURAGESIC-100 [Suspect]
     Indication: PAIN
     Dosage: 100UG/HR+50UG/HR
     Route: 062
     Dates: end: 20090101
  2. DURAGESIC-100 [Suspect]
     Dosage: 100UG/HR+50UG/HR
     Route: 062
  3. ULTRAM [Concomitant]
     Indication: PAIN
     Route: 048
  4. VICODIN [Concomitant]
     Indication: PAIN
     Route: 048
  5. POTASSIUM [Concomitant]
     Indication: DRUG USE FOR UNKNOWN INDICATION
     Route: 048
  6. CALCIUM [Concomitant]
     Indication: DRUG USE FOR UNKNOWN INDICATION
     Route: 048
  7. IRON [Concomitant]
     Indication: IRON DEFICIENCY
     Route: 030

REACTIONS (3)
  - APPLICATION SITE REACTION [None]
  - PRODUCT QUALITY ISSUE [None]
  - WRONG TECHNIQUE IN DRUG USAGE PROCESS [None]
